FAERS Safety Report 24658390 (Version 2)
Quarter: 2024Q4

REPORT INFORMATION
  Report Type: Spontaneous
  Country: US (occurrence: US)
  Receive Date: 20241125
  Receipt Date: 20241202
  Transmission Date: 20250115
  Serious: Yes (Life-Threatening, Hospitalization)
  Sender: MYLAN
  Company Number: US-MYLANLABS-2024M1105765

PATIENT
  Age: 47 Year
  Sex: Male

DRUGS (1)
  1. AMLODIPINE [Suspect]
     Active Substance: AMLODIPINE BESYLATE
     Indication: Hypertension
     Dosage: 900 MILLIGRAM
     Route: 065

REACTIONS (8)
  - Distributive shock [Unknown]
  - Respiratory failure [Unknown]
  - Acute kidney injury [Unknown]
  - Metabolic disorder [Unknown]
  - Peripheral ischaemia [Unknown]
  - Acute respiratory distress syndrome [Unknown]
  - Toxicity to various agents [Unknown]
  - Intentional overdose [Unknown]
